FAERS Safety Report 22833052 (Version 9)
Quarter: 2024Q1

REPORT INFORMATION
  Report Type: Spontaneous
  Country: US (occurrence: US)
  Receive Date: 20230817
  Receipt Date: 20240108
  Transmission Date: 20240410
  Serious: Yes (Hospitalization, Other)
  Sender: FDA-Public Use
  Company Number: US-PFIZER INC-PV202300140803

PATIENT
  Age: 66 Year
  Sex: Female

DRUGS (3)
  1. IBRANCE [Suspect]
     Active Substance: PALBOCICLIB
     Indication: Breast cancer metastatic
     Dosage: FOR 2 MONTHS
  2. IBRANCE [Suspect]
     Active Substance: PALBOCICLIB
     Dosage: 100 MG, 1X/DAY
     Dates: end: 202311
  3. PROLIA [Concomitant]
     Active Substance: DENOSUMAB
     Indication: Bone disorder
     Dosage: UNK

REACTIONS (19)
  - Atrial fibrillation [Unknown]
  - Hip fracture [Unknown]
  - Pulmonary embolism [Unknown]
  - Haemoglobin decreased [Recovering/Resolving]
  - Shoulder fracture [Unknown]
  - Somnolence [Unknown]
  - Peripheral swelling [Not Recovered/Not Resolved]
  - Nasopharyngitis [Not Recovered/Not Resolved]
  - Respiratory tract congestion [Not Recovered/Not Resolved]
  - Dyspnoea [Not Recovered/Not Resolved]
  - Cough [Not Recovered/Not Resolved]
  - Pain [Unknown]
  - Feeling abnormal [Unknown]
  - Insomnia [Unknown]
  - White blood cell count decreased [Unknown]
  - Upper respiratory tract congestion [Unknown]
  - Hypertension [Unknown]
  - Oedema [Not Recovered/Not Resolved]
  - Calcium deficiency [Unknown]

NARRATIVE: CASE EVENT DATE: 20230101
